FAERS Safety Report 14631612 (Version 2)
Quarter: 2018Q1

REPORT INFORMATION
  Report Type: Spontaneous
  Country: ZA (occurrence: ZA)
  Receive Date: 20180313
  Receipt Date: 20180328
  Transmission Date: 20180509
  Serious: Yes (Hospitalization)
  Sender: FDA-Public Use
  Company Number: ZA-PFIZER INC-2018097045

PATIENT
  Age: 56 Year
  Sex: Female

DRUGS (11)
  1. YELATE 60MG [Suspect]
     Active Substance: DULOXETINE HYDROCHLORIDE
     Dosage: 50 MG, UNK
  2. CYMGEN [Suspect]
     Active Substance: DULOXETINE HYDROCHLORIDE
     Dosage: 90 MG, UNK
  3. TREPILINE /00002201/ [Suspect]
     Active Substance: AMITRIPTYLINE
     Dosage: 25 MG, UNK
  4. ZOPIVANE [Suspect]
     Active Substance: ZOPICLONE
     Dosage: 7.5 MG, UNK
  5. ESTROFEM /00045401/ [Suspect]
     Active Substance: ESTRADIOL
     Dosage: 2 MG, UNK
  6. ELTROXIN [Suspect]
     Active Substance: LEVOTHYROXINE
     Dosage: 125 UG, UNK
  7. GLUCOPHAGE [Suspect]
     Active Substance: METFORMIN HYDROCHLORIDE
     Dosage: 500 MG, UNK
  8. ASPEN TRAZODONE [Suspect]
     Active Substance: TRAZODONE HYDROCHLORIDE
     Dosage: 100 MG, UNK
  9. CELEBREX [Suspect]
     Active Substance: CELECOXIB
     Indication: FIBROMYALGIA
     Dosage: 200 MG, UNK
  10. LYRICA [Suspect]
     Active Substance: PREGABALIN
     Indication: FIBROMYALGIA
     Dosage: 100 MG, UNK
  11. TRAMAHEXAL [Suspect]
     Active Substance: TRAMADOL HYDROCHLORIDE
     Dosage: 50 MG, UNK

REACTIONS (3)
  - Sleep disorder [Unknown]
  - Condition aggravated [Unknown]
  - Fibromyalgia [Recovering/Resolving]
